FAERS Safety Report 24870226 (Version 4)
Quarter: 2025Q3

REPORT INFORMATION
  Report Type: Spontaneous
  Country: US (occurrence: US)
  Receive Date: 20250121
  Receipt Date: 20250908
  Transmission Date: 20251021
  Serious: Yes (Death, Other)
  Sender: SANOFI AVENTIS
  Company Number: US-SA-2025SA018867

PATIENT
  Age: 68 Year
  Sex: Male

DRUGS (19)
  1. REZUROCK [Suspect]
     Active Substance: BELUMOSUDIL
     Indication: Graft versus host disease
     Dosage: 200 MG, BID
     Route: 048
     Dates: start: 202412
  2. REZUROCK [Suspect]
     Active Substance: BELUMOSUDIL
     Indication: Bronchiolitis obliterans syndrome
  3. REZUROCK [Suspect]
     Active Substance: BELUMOSUDIL
     Indication: Obliterative bronchiolitis
  4. DECITABINE [Concomitant]
     Active Substance: DECITABINE
     Route: 042
  5. ALBUTEROL SULFATE [Concomitant]
     Active Substance: ALBUTEROL SULFATE
  6. VENCLEXTA [Concomitant]
     Active Substance: VENETOCLAX
  7. MONTELUKAST SODIUM [Concomitant]
     Active Substance: MONTELUKAST SODIUM
  8. ATROVENT HFA [Concomitant]
     Active Substance: IPRATROPIUM BROMIDE
     Route: 055
  9. ALLOPURINOL [Concomitant]
     Active Substance: ALLOPURINOL
  10. ERYTHROMYCIN [Concomitant]
     Active Substance: ERYTHROMYCIN
  11. BACTRIM DS [Concomitant]
     Active Substance: SULFAMETHOXAZOLE\TRIMETHOPRIM
  12. BACTRIM DS [Concomitant]
     Active Substance: SULFAMETHOXAZOLE\TRIMETHOPRIM
  13. SYNTHROID [Concomitant]
     Active Substance: LEVOTHYROXINE SODIUM
  14. SYNTHROID [Concomitant]
     Active Substance: LEVOTHYROXINE SODIUM
  15. FLUTICASONE [Concomitant]
     Active Substance: FLUTICASONE
  16. FLUTICASONE [Concomitant]
     Active Substance: FLUTICASONE
  17. SODIUM FLUORIDE [Concomitant]
     Active Substance: SODIUM FLUORIDE
  18. VALTREX [Concomitant]
     Active Substance: VALACYCLOVIR HYDROCHLORIDE
  19. VALTREX [Concomitant]
     Active Substance: VALACYCLOVIR HYDROCHLORIDE

REACTIONS (7)
  - Death [Fatal]
  - Recurrent cancer [Unknown]
  - Leukaemia [Unknown]
  - Blepharitis [Not Recovered/Not Resolved]
  - Cough [Unknown]
  - Inappropriate schedule of product administration [Unknown]
  - Product use in unapproved indication [Unknown]

NARRATIVE: CASE EVENT DATE: 20241201
